FAERS Safety Report 6916759-5 (Version None)
Quarter: 2010Q3

REPORT INFORMATION
  Report Type: 
  Country: None (occurrence: None)
  Receive Date: 20100810
  Receipt Date: 20100804
  Transmission Date: 20110219
  Serious: Yes (Hospitalization, Other)
  Sender: FDA-Public Use
  Company Number: DE-ROCHE-719784

PATIENT
  Age: 41 Year
  Sex: Male

DRUGS (2)
  1. VALCYTE [Suspect]
     Indication: INFECTION PROPHYLAXIS
     Route: 065
     Dates: start: 20100729, end: 20100729
  2. VALCYTE [Suspect]
     Route: 065
     Dates: start: 20100730

REACTIONS (2)
  - HEADACHE [None]
  - HERPES SIMPLEX [None]
